FAERS Safety Report 8070130-4 (Version None)
Quarter: 2012Q1

REPORT INFORMATION
  Report Type: 
  Country: None (occurrence: None)
  Receive Date: 20120125
  Receipt Date: 20120111
  Transmission Date: 20120608
  Serious: Yes (Hospitalization)
  Sender: FDA-Public Use
  Company Number: FR-ROCHE-1014318

PATIENT
  Sex: Female

DRUGS (10)
  1. MINIRIN [Concomitant]
  2. BACLOFEN [Concomitant]
  3. ASPIRIN [Concomitant]
  4. SOMATROPIN RDNA [Suspect]
     Indication: GROWTH HORMONE DEFICIENCY
     Route: 058
     Dates: start: 20060524
  5. HYDROCORTISONE [Concomitant]
  6. PAROXETINE [Concomitant]
  7. CLIMASTON [Concomitant]
  8. PANTOPRAZOLE SODIUM [Concomitant]
  9. LEVOTHYROXINE SODIUM [Concomitant]
  10. PLAVIX [Concomitant]

REACTIONS (2)
  - LOSS OF CONSCIOUSNESS [None]
  - EPILEPSY [None]
